FAERS Safety Report 9198332 (Version 1)
Quarter: 2013Q1

REPORT INFORMATION
  Report Type: Spontaneous
  Country: US (occurrence: None)
  Receive Date: 20130326
  Receipt Date: 20130326
  Transmission Date: 20140127
  Serious: Yes (Death)
  Sender: FDA-Public Use
  Company Number: 2013-075

PATIENT
  Age: 51 Year
  Sex: Male

DRUGS (9)
  1. FAZACLO (CLOZAPINE, USP) ODT (ORAL DISINTEGRATING TABLET) [Suspect]
     Route: 048
     Dates: start: 20120416
  2. CLONAZEPAM (CLONAZEPAM) [Concomitant]
  3. POTASSIUM (POTASSIUM) [Concomitant]
  4. PRAVASTATIN (PRAVASTATIN SODIUM) [Concomitant]
  5. VITAMIN D (ERGOCALCIFEROL) [Concomitant]
  6. LISINOPRIL (LISINOPRIL) [Concomitant]
  7. OMEPRAZOLE (OMEPRAZOLE) [Concomitant]
  8. FERROUS SULFATE (FERROUS SULFATE) [Concomitant]
  9. FIBER-LAX (POLYCARBOPHIL CALCIUM) [Concomitant]

REACTIONS (1)
  - Completed suicide [None]
